FAERS Safety Report 15893093 (Version 1)
Quarter: 2019Q1

REPORT INFORMATION
  Report Type: Spontaneous
  Country: DE (occurrence: DE)
  Receive Date: 20190130
  Receipt Date: 20190130
  Transmission Date: 20190417
  Serious: No
  Sender: FDA-Public Use
  Company Number: DE-IPSEN-CABO-18015357

PATIENT
  Age: 50 Year
  Sex: Male

DRUGS (1)
  1. CABOMETYX [Suspect]
     Active Substance: CABOZANTINIB S-MALATE
     Indication: PRODUCT USED FOR UNKNOWN INDICATION
     Dosage: UNK

REACTIONS (9)
  - Haemorrhoids [Unknown]
  - Hypertension [Unknown]
  - Fatigue [Unknown]
  - Palmar-plantar erythrodysaesthesia syndrome [Unknown]
  - Pain of skin [Unknown]
  - Thyroid hormones increased [Unknown]
  - Dry mouth [Unknown]
  - Nasal dryness [Unknown]
  - Hair colour changes [Unknown]

NARRATIVE: CASE EVENT DATE: 201807
